FAERS Safety Report 18485137 (Version 1)
Quarter: 2020Q4

REPORT INFORMATION
  Report Type: Spontaneous
  Country: PT (occurrence: PT)
  Receive Date: 20201110
  Receipt Date: 20201110
  Transmission Date: 20210114
  Serious: Yes (Hospitalization, Other)
  Sender: FDA-Public Use
  Company Number: PT-PFIZER INC-2020441795

PATIENT
  Age: 80 Year
  Sex: Male

DRUGS (5)
  1. HYDROCHLOROTHIAZIDE. [Suspect]
     Active Substance: HYDROCHLOROTHIAZIDE
     Dosage: UNK
  2. FUROSEMIDE. [Suspect]
     Active Substance: FUROSEMIDE
     Dosage: UNK
  3. ENALAPRIL [Suspect]
     Active Substance: ENALAPRIL
     Dosage: UNK
  4. SPIRONOLACTONE. [Suspect]
     Active Substance: SPIRONOLACTONE
     Dosage: UNK
  5. DABIGATRAN [Suspect]
     Active Substance: DABIGATRAN
     Dosage: UNK

REACTIONS (5)
  - Staphylococcal infection [Unknown]
  - Dehydration [Unknown]
  - Urinary tract infection [Unknown]
  - Parotitis [Recovered/Resolved]
  - Facial paralysis [Recovered/Resolved]
